FAERS Safety Report 6119769 (Version 16)
Quarter: 2013Q4

REPORT INFORMATION
  Report Type: Spontaneous
  Country: US (occurrence: US)
  Receive Date: 20060831
  Receipt Date: 20131007
  Transmission Date: 20140711
  Serious: Yes (Hospitalization, Other)
  Sender: FDA-Public Use
  Company Number: PHEH2006US10878

PATIENT
  Age: 54 Year
  Sex: Male

DRUGS (25)
  1. ZOMETA [Suspect]
     Indication: PLASMA CELL MYELOMA
     Dosage: 4 MG, UNK
     Route: 042
  2. MELPHALAN [Concomitant]
  3. PREDNISONE [Concomitant]
  4. CYTOXAN [Concomitant]
  5. HYDROCHLOROTHIAZIDE [Concomitant]
  6. THALIDOMIDE [Concomitant]
  7. DEXAMETHASONE [Concomitant]
  8. NEURONTIN [Concomitant]
  9. CHANTIX [Concomitant]
  10. WELLBUTRIN SR [Concomitant]
     Route: 048
  11. IBUPROFEN [Concomitant]
     Dosage: 800 MG, TID
     Dates: start: 20040225
  12. LEXAPRO [Concomitant]
     Dosage: 10 MG, QD
     Dates: start: 20040518
  13. LISINOPRIL/HCTZ [Concomitant]
     Dates: start: 20040518
  14. NORVASC [Concomitant]
     Dosage: 10 MG, QD
     Dates: start: 20040518
  15. OXYCODONE HYDROCHLORIDE [Concomitant]
     Dates: start: 20040527
  16. OXYCONTIN [Concomitant]
     Dates: start: 20040527
  17. EPOGEN [Concomitant]
  18. SENNA [Concomitant]
     Route: 049
  19. PREVACID [Concomitant]
  20. COLACE [Concomitant]
  21. ZESTORETIC ^HAESSLE^ [Concomitant]
  22. KAY CIEL [Concomitant]
  23. PENICILLIN ^GRUNENTHAL^ [Concomitant]
  24. VITAMIN B12 [Concomitant]
  25. COUMADIN//COUMARIN [Concomitant]
     Dosage: 5 MG, QD

REACTIONS (116)
  - Osteonecrosis of jaw [Unknown]
  - Injury [Unknown]
  - Pain [Unknown]
  - Anxiety [Unknown]
  - Osteomyelitis [Unknown]
  - Bone disorder [Unknown]
  - Abscess [Unknown]
  - Purulent discharge [Unknown]
  - Jaw fracture [Unknown]
  - Poor dental condition [Unknown]
  - Pulmonary mass [Unknown]
  - Compression fracture [Unknown]
  - Anaemia [Unknown]
  - Hypotension [Unknown]
  - Gastrooesophageal reflux disease [Unknown]
  - Urinary retention [Unknown]
  - Depression [Unknown]
  - Spinal column stenosis [Unknown]
  - Osteolysis [Unknown]
  - Cellulitis [Unknown]
  - Actinomycotic skin infection [Unknown]
  - Thrombocytopenia [Unknown]
  - Weight decreased [Unknown]
  - Constipation [Unknown]
  - Cholecystitis chronic [Unknown]
  - Osteopenia [Unknown]
  - Epistaxis [Unknown]
  - Candida infection [Unknown]
  - Vision blurred [Unknown]
  - Prostatic disorder [Unknown]
  - Decreased appetite [Unknown]
  - Arthralgia [Unknown]
  - Asthenia [Unknown]
  - Night sweats [Unknown]
  - Diverticulitis [Unknown]
  - Laceration [Unknown]
  - Sinusitis [Unknown]
  - Bronchitis [Unknown]
  - Toothache [Unknown]
  - Pain in jaw [Unknown]
  - Osteitis [Unknown]
  - Hypocalcaemia [Unknown]
  - Amnesia [Unknown]
  - Neuropathy peripheral [Unknown]
  - Confusional state [Unknown]
  - Osteoarthritis [Unknown]
  - Dizziness [Unknown]
  - Chest pain [Unknown]
  - Rotator cuff syndrome [Unknown]
  - Hypokalaemia [Unknown]
  - Hypoaesthesia [Unknown]
  - Aortic stenosis [Unknown]
  - Aneurysm [Unknown]
  - Bone infarction [Unknown]
  - Pleural effusion [Unknown]
  - Atelectasis [Unknown]
  - Intervertebral disc degeneration [Unknown]
  - Radiculopathy [Unknown]
  - Peripheral artery stenosis [Unknown]
  - Spinal osteoarthritis [Unknown]
  - Lipohypertrophy [Unknown]
  - Dental caries [Unknown]
  - Breath odour [Unknown]
  - Ventricular hypertrophy [Unknown]
  - Upper respiratory tract infection [Unknown]
  - Bursitis [Unknown]
  - Insomnia [Unknown]
  - Herpes simplex [Unknown]
  - Rash [Unknown]
  - Cushingoid [Unknown]
  - Left atrial dilatation [Unknown]
  - Musculoskeletal stiffness [Unknown]
  - Lung consolidation [Unknown]
  - Sinus bradycardia [Unknown]
  - Laryngeal oedema [Unknown]
  - Swelling [Unknown]
  - Laryngeal leukoplakia [Unknown]
  - Pathological fracture [Unknown]
  - Haemorrhagic anaemia [Unknown]
  - Vertebral foraminal stenosis [Unknown]
  - Fall [Unknown]
  - Spinal pain [Unknown]
  - Hypervolaemia [Unknown]
  - Bronchospasm [Unknown]
  - Leukocytosis [Unknown]
  - Hypernatraemia [Unknown]
  - Vitamin B12 deficiency [Unknown]
  - Hyperviscosity syndrome [Unknown]
  - Renal failure [Unknown]
  - Cardiac murmur [Unknown]
  - Sepsis [Unknown]
  - Urinary tract infection [Unknown]
  - Decubitus ulcer [Unknown]
  - Clostridium difficile colitis [Unknown]
  - Waldenstrom^s macroglobulinaemia [Unknown]
  - Myoclonus [Unknown]
  - Joint swelling [Unknown]
  - Mental status changes [Unknown]
  - Wound [Unknown]
  - Salivary hypersecretion [Unknown]
  - Dysphonia [Unknown]
  - Dry mouth [Unknown]
  - Dyspnoea [Unknown]
  - Oedema peripheral [Unknown]
  - Muscle spasms [Unknown]
  - Pain in extremity [Unknown]
  - Myalgia [Unknown]
  - Gait disturbance [Unknown]
  - Tremor [Unknown]
  - Paraesthesia [Unknown]
  - Tobacco abuse [Unknown]
  - Musculoskeletal pain [Unknown]
  - Contusion [Unknown]
  - Urinary incontinence [Unknown]
  - Ataxia [Unknown]
  - Haematoma [Unknown]
